FAERS Safety Report 20696323 (Version 2)
Quarter: 2023Q2

REPORT INFORMATION
  Report Type: Spontaneous
  Country: US (occurrence: US)
  Receive Date: 20220411
  Receipt Date: 20230530
  Transmission Date: 20230721
  Serious: No
  Sender: FDA-Public Use
  Company Number: US-PFIZER INC-202101864167

PATIENT
  Age: 76 Year
  Sex: Female

DRUGS (1)
  1. IBRANCE [Suspect]
     Active Substance: PALBOCICLIB
     Dosage: 1 Q DAY DAYS 1-21 EVERY 28 DAYS
     Route: 048

REACTIONS (1)
  - Exposure to SARS-CoV-2 [Unknown]
